FAERS Safety Report 8218288-8 (Version None)
Quarter: 2012Q1

REPORT INFORMATION
  Report Type: 
  Country: None (occurrence: None)
  Receive Date: 20120319
  Receipt Date: 20120315
  Transmission Date: 20120608
  Serious: Yes (Hospitalization)
  Sender: FDA-Public Use
  Company Number: US-GLAXOSMITHKLINE-A0969978A

PATIENT
  Age: 56 Year
  Sex: Female

DRUGS (2)
  1. ALLI [Suspect]
     Indication: WEIGHT LOSS DIET
     Route: 048
     Dates: start: 20120301, end: 20120308
  2. UNSPECIFIED MEDICATION [Concomitant]

REACTIONS (8)
  - ABASIA [None]
  - ADVERSE EVENT [None]
  - ASTHMA [None]
  - COUGH [None]
  - ANXIETY [None]
  - DYSPNOEA [None]
  - CONDITION AGGRAVATED [None]
  - PAIN [None]
